FAERS Safety Report 23995855 (Version 4)
Quarter: 2024Q3

REPORT INFORMATION
  Report Type: Spontaneous
  Country: CZ (occurrence: CZ)
  Receive Date: 20240620
  Receipt Date: 20240718
  Transmission Date: 20241017
  Serious: Yes (Life-Threatening, Hospitalization, Other)
  Sender: OTSUKA
  Company Number: CZ-LESVI-2024003315

PATIENT
  Age: 46 Year
  Sex: Male

DRUGS (13)
  1. ARIPIPRAZOLE [Suspect]
     Active Substance: ARIPIPRAZOLE
     Indication: Schizophrenia
     Dosage: 15 MG, QD
     Route: 065
  2. OLANZAPINE [Suspect]
     Active Substance: OLANZAPINE
     Indication: Schizophrenia
     Dosage: 20 MG, QD
     Route: 065
  3. OLANZAPINE [Suspect]
     Active Substance: OLANZAPINE
     Dosage: 30 MG, QD (ON THE 3RD DAY SWITCHED TO 30 MG PER DAY ORALLY)
     Route: 048
  4. OLANZAPINE [Suspect]
     Active Substance: OLANZAPINE
     Dosage: 20 MG, QD
     Route: 065
  5. SERTRALINE [Suspect]
     Active Substance: SERTRALINE HYDROCHLORIDE
     Indication: Schizophrenia
     Dosage: 100 MG, QD
     Route: 065
  6. SERTRALINE [Suspect]
     Active Substance: SERTRALINE HYDROCHLORIDE
     Dosage: 20 MG, QD
     Route: 065
  7. CLONAZEPAM [Suspect]
     Active Substance: CLONAZEPAM
     Indication: Schizophrenia
     Dosage: 4 MG, QD
     Route: 030
  8. CLONAZEPAM [Suspect]
     Active Substance: CLONAZEPAM
     Dosage: 8 MG, QD
     Route: 030
  9. MIDAZOLAM [Suspect]
     Active Substance: MIDAZOLAM
     Indication: Schizophrenia
     Dosage: UNK
     Route: 065
  10. CEFUROXIME [Concomitant]
     Active Substance: CEFUROXIME
     Indication: Pyrexia
     Dosage: UNK
     Route: 065
  11. CEFUROXIME [Concomitant]
     Active Substance: CEFUROXIME
     Indication: C-reactive protein increased
  12. SULFAMETHOXAZOLE [Concomitant]
     Active Substance: SULFAMETHOXAZOLE
     Indication: Pyrexia
     Dosage: UNK
     Route: 065
  13. SULFAMETHOXAZOLE [Concomitant]
     Active Substance: SULFAMETHOXAZOLE
     Indication: C-reactive protein increased

REACTIONS (14)
  - Malignant catatonia [Recovered/Resolved]
  - Condition aggravated [Unknown]
  - Disease progression [Unknown]
  - Schizophrenia [Unknown]
  - Hyperglycaemia [Unknown]
  - Staphylococcal infection [Unknown]
  - Amnesia [Unknown]
  - Blood glucose increased [Unknown]
  - Hypertension [Unknown]
  - Pyrexia [Unknown]
  - Treatment noncompliance [Unknown]
  - Intentional product use issue [Unknown]
  - Therapy cessation [Unknown]
  - Drug ineffective [Unknown]
